FAERS Safety Report 8615863-3 (Version None)
Quarter: 2012Q3

REPORT INFORMATION
  Report Type: 
  Country: None (occurrence: None)
  Receive Date: 20120823
  Receipt Date: 20120813
  Transmission Date: 20120928
  Serious: Yes (Hospitalization)
  Sender: FDA-Public Use
  Company Number: US-WATSON-2012-14288

PATIENT
  Sex: Male
  Weight: 93 kg

DRUGS (2)
  1. TRELSTAR [Suspect]
     Indication: PROSTATE CANCER
     Dosage: UNK
     Route: 065
     Dates: start: 20110101, end: 20120101
  2. TRELSTAR [Suspect]
     Indication: PROSTATE CANCER
     Dosage: INJECTION EVERY 3 MONTHS
     Route: 030

REACTIONS (2)
  - LOSS OF CONSCIOUSNESS [None]
  - HEART RATE DECREASED [None]
